FAERS Safety Report 17375069 (Version 1)
Quarter: 2020Q1

REPORT INFORMATION
  Report Type: Spontaneous
  Country: US (occurrence: US)
  Receive Date: 20200204
  Receipt Date: 20200204
  Transmission Date: 20200409
  Serious: Yes (Disabling)
  Sender: FDA-Public Use
  Company Number: None

PATIENT
  Age: 38 Year
  Sex: Male

DRUGS (2)
  1. ZOLOFT [Concomitant]
     Active Substance: SERTRALINE HYDROCHLORIDE
  2. KRATOM [Suspect]
     Active Substance: HERBALS\MITRAGYNINE
     Indication: ALCOHOLISM
     Route: 048
     Dates: start: 20170601, end: 20200201

REACTIONS (1)
  - Drug dependence [None]

NARRATIVE: CASE EVENT DATE: 20191202
